FAERS Safety Report 5994168-3 (Version None)
Quarter: 2008Q4

REPORT INFORMATION
  Report Type: 
  Country: None (occurrence: None)
  Receive Date: 20081212
  Receipt Date: 20080903
  Transmission Date: 20090506
  Serious: No
  Sender: FDA-Public Use
  Company Number: US-ABBOTT-08P-163-0473867-00

PATIENT
  Sex: Female
  Weight: 105 kg

DRUGS (7)
  1. HUMIRA [Suspect]
     Indication: PSORIATIC ARTHROPATHY
     Route: 058
     Dates: start: 20060101, end: 20080814
  2. HUMIRA [Suspect]
     Indication: PSORIATIC ARTHROPATHY
     Route: 058
     Dates: start: 20080828
  3. CAPTOPRIL [Concomitant]
     Indication: HYPERTENSION
     Route: 048
  4. ZITHOPAN XL [Concomitant]
     Indication: DRUG USE FOR UNKNOWN INDICATION
     Route: 048
  5. HYDROCHLOROTE [Concomitant]
     Indication: DIURETIC THERAPY
     Route: 048
  6. RALOXIFENE HCL [Concomitant]
     Indication: DRUG USE FOR UNKNOWN INDICATION
     Route: 048
  7. FOLIC ACID [Concomitant]
     Indication: DRUG USE FOR UNKNOWN INDICATION
     Route: 048

REACTIONS (8)
  - ERYTHEMA [None]
  - FEELING HOT [None]
  - INJECTION SITE PAIN [None]
  - OEDEMA PERIPHERAL [None]
  - PROCEDURAL COMPLICATION [None]
  - PRURITUS [None]
  - URTICARIA [None]
  - VULVOVAGINAL PRURITUS [None]
